FAERS Safety Report 4821846-1 (Version None)
Quarter: 2005Q4

REPORT INFORMATION
  Report Type: 
  Country: None (occurrence: None)
  Receive Date: 20051102
  Receipt Date: 20051013
  Transmission Date: 20060501
  Serious: Yes (Other)
  Sender: FDA-Public Use
  Company Number: JP_051007866

PATIENT
  Age: 83 Year
  Sex: Female
  Weight: 38 kg

DRUGS (4)
  1. EVISTA [Suspect]
     Indication: OSTEOPOROSIS POSTMENOPAUSAL
     Dosage: 60 MG/1 DAY
     Dates: start: 20050407, end: 20050506
  2. EPADEL (ETHYL ICOSAPENTATE) [Concomitant]
  3. DIOVAN [Concomitant]
  4. LEVOTOMIN             (LEVOMEPROMAZINE MALEATE) [Concomitant]

REACTIONS (2)
  - ANAEMIA [None]
  - SMALL INTESTINAL HAEMORRHAGE [None]
